FAERS Safety Report 17040757 (Version 1)
Quarter: 2019Q4

REPORT INFORMATION
  Report Type: Spontaneous
  Country: US (occurrence: US)
  Receive Date: 20191117
  Receipt Date: 20191117
  Transmission Date: 20200122
  Serious: No
  Sender: FDA-Public Use
  Company Number: US-JNJFOC-20191111131

PATIENT
  Sex: Male
  Weight: 10.9 kg

DRUGS (2)
  1. CHILDRENS MOTRIN [Suspect]
     Active Substance: IBUPROFEN
     Indication: TEETHING
     Dosage: HALF OF IBUPROFEN AND HALF OF PARCETAMOL ONCE
     Route: 048
  2. CHILDRENS TYLENOL [Suspect]
     Active Substance: ACETAMINOPHEN
     Indication: TEETHING
     Dosage: HALF OF PARACETAMOL
     Route: 065

REACTIONS (1)
  - Incorrect dose administered [Unknown]
